FAERS Safety Report 9667631 (Version 2)
Quarter: 2013Q4

REPORT INFORMATION
  Report Type: Spontaneous
  Country: FR (occurrence: FR)
  Receive Date: 20131104
  Receipt Date: 20131115
  Transmission Date: 20140711
  Serious: Yes (Hospitalization)
  Sender: FDA-Public Use
  Company Number: FR-PFIZER INC-2013310026

PATIENT
  Age: 49 Year
  Sex: Female

DRUGS (21)
  1. ARACYTINE [Suspect]
     Indication: ACUTE MYELOID LEUKAEMIA
     Dosage: UNK
     Route: 042
     Dates: start: 201210
  2. ARACYTINE [Suspect]
     Dosage: UNK
     Dates: start: 201212, end: 20121220
  3. ZAVEDOS [Suspect]
     Indication: ACUTE MYELOID LEUKAEMIA
     Dosage: UNK
     Route: 042
     Dates: start: 201212, end: 201212
  4. GLIVEC [Suspect]
     Indication: CHRONIC MYELOID LEUKAEMIA
     Dosage: 400 MG, DAILY
     Route: 048
     Dates: start: 2007, end: 2009
  5. GLIVEC [Suspect]
     Dosage: 600 MG, DAILY
     Route: 048
     Dates: start: 2009, end: 2010
  6. TASIGNA [Suspect]
     Indication: CHRONIC MYELOID LEUKAEMIA
     Dosage: 400 MG, DAILY
     Route: 048
     Dates: start: 201006
  7. TASIGNA [Suspect]
     Dosage: 800 MG, DAILY
     Route: 048
     Dates: end: 201109
  8. SPRYCEL [Suspect]
     Indication: CHRONIC MYELOID LEUKAEMIA
     Dosage: 50 MG, DAILY
     Route: 048
     Dates: start: 201207, end: 201208
  9. CERUBIDINE [Suspect]
     Indication: ACUTE MYELOID LEUKAEMIA
     Dosage: UNK
     Route: 042
     Dates: start: 201210, end: 201210
  10. ENDOXAN [Suspect]
     Indication: ACUTE MYELOID LEUKAEMIA
     Dosage: UNK
     Route: 042
     Dates: start: 201303, end: 201303
  11. BUSILVEX [Suspect]
     Indication: ACUTE MYELOID LEUKAEMIA
     Dosage: UNK
     Route: 042
     Dates: start: 20130313, end: 201303
  12. NEORAL [Interacting]
     Dosage: 75 MG, 2X/DAY
     Route: 048
     Dates: start: 20130321
  13. NEORAL [Interacting]
     Dosage: 50 MG, 2X/DAY
     Route: 048
     Dates: start: 20130812, end: 20130829
  14. NOXAFIL [Interacting]
     Dosage: 200 MG, 3X/DAY
     Route: 048
     Dates: start: 201301, end: 201309
  15. ROVAMYCINE [Concomitant]
     Dosage: 3 MILLIONIU, 2X/DAY
     Route: 048
     Dates: start: 201304
  16. ZELITREX [Concomitant]
     Dosage: 500 MG, 2X/DAY
     Route: 048
     Dates: start: 201304
  17. WELLVONE [Concomitant]
     Dosage: 700 MG, 2X/DAY
     Route: 048
  18. MOPRAL [Concomitant]
     Dosage: 20 MG, 1X/DAY
     Route: 048
     Dates: start: 201303
  19. LYRICA [Concomitant]
     Dosage: 25 MG, 2X/DAY
     Route: 048
  20. SEROPLEX [Concomitant]
     Dosage: 1 DF, DAILY
     Route: 048
  21. LEXOMIL [Concomitant]
     Dosage: 0.5 DF, DAILY
     Route: 048

REACTIONS (5)
  - Drug interaction [Unknown]
  - Myocardial infarction [Recovering/Resolving]
  - Acute coronary syndrome [Recovering/Resolving]
  - Cardiac failure [Recovering/Resolving]
  - Ejection fraction decreased [Recovering/Resolving]
